FAERS Safety Report 11235684 (Version 2)
Quarter: 2015Q3

REPORT INFORMATION
  Report Type: Spontaneous
  Country: IT (occurrence: IT)
  Receive Date: 20150702
  Receipt Date: 20150727
  Transmission Date: 20151125
  Serious: Yes (Other)
  Sender: FDA-Public Use
  Company Number: IT-PFIZER INC-2015213706

PATIENT
  Age: 81 Year
  Sex: Male

DRUGS (5)
  1. AVODART [Concomitant]
     Active Substance: DUTASTERIDE
     Dosage: 0.5 MG, UNK
     Route: 048
  2. SUTENT [Suspect]
     Active Substance: SUNITINIB MALATE
     Indication: RENAL CELL CARCINOMA
     Dosage: 12.5 MG, DAILY
     Route: 048
  3. ADALAT [Concomitant]
     Active Substance: NIFEDIPINE
  4. REPAGLINIDE. [Concomitant]
     Active Substance: REPAGLINIDE
  5. APROVEL [Concomitant]
     Active Substance: IRBESARTAN

REACTIONS (3)
  - Cold sweat [Recovered/Resolved]
  - Pancreatic enzymes increased [Recovered/Resolved]
  - Chest pain [Recovered/Resolved]

NARRATIVE: CASE EVENT DATE: 20131007
